FAERS Safety Report 4342575-7 (Version None)
Quarter: 2004Q2

REPORT INFORMATION
  Report Type: 
  Country: None (occurrence: None)
  Receive Date: 20040416
  Receipt Date: 20040405
  Transmission Date: 20050107
  Serious: Yes (Other)
  Sender: FDA-Public Use
  Company Number: GB-JNJFOC-20040400868

PATIENT
  Age: 64 Year
  Sex: Female

DRUGS (8)
  1. REMICADE [Suspect]
     Indication: RHEUMATOID ARTHRITIS
     Dosage: 210 MG, INTRAVENOUS
     Route: 042
     Dates: start: 20020813
  2. METHOTREXATE [Concomitant]
  3. PREDNISOLONE [Concomitant]
  4. NDOCID (INDOMETACIN) [Concomitant]
  5. CALCIUM (CALCIUM) [Concomitant]
  6. KLIOFEM (KLIOGEST ^NOVO INDUSTRI^) [Concomitant]
  7. FELODIPINE [Concomitant]
  8. RANITIDINE [Concomitant]

REACTIONS (2)
  - OSTEOPOROTIC FRACTURE [None]
  - SPINAL COMPRESSION FRACTURE [None]
